FAERS Safety Report 13562179 (Version 11)
Quarter: 2021Q3

REPORT INFORMATION
  Report Type: Report from Study
  Country: CO (occurrence: CO)
  Receive Date: 20170519
  Receipt Date: 20210917
  Transmission Date: 20211014
  Serious: Yes (Hospitalization, Other)
  Sender: FDA-Public Use
  Company Number: CO-AMGEN-COLSL2017074138

PATIENT
  Age: 73 Year
  Sex: Male

DRUGS (6)
  1. NPLATE [Suspect]
     Active Substance: ROMIPLOSTIM
     Indication: IMMUNE THROMBOCYTOPENIA
     Dosage: 250 MICROGRAM, QWK
     Route: 058
     Dates: start: 20151020
  2. NPLATE [Suspect]
     Active Substance: ROMIPLOSTIM
     Dosage: 250 MICROGRAM, QWK
     Route: 058
     Dates: start: 20200803, end: 20210209
  3. NPLATE [Suspect]
     Active Substance: ROMIPLOSTIM
     Dosage: 250 MICROGRAM, QWK
     Route: 058
     Dates: start: 20210216
  4. NPLATE [Suspect]
     Active Substance: ROMIPLOSTIM
     Dosage: UNK UNK, QWK
     Route: 058
  5. NPLATE [Suspect]
     Active Substance: ROMIPLOSTIM
     Dosage: UNK UNK, Q4WK
     Route: 058
  6. NPLATE [Suspect]
     Active Substance: ROMIPLOSTIM
     Dosage: 250 MICROGRAM, Q2WK
     Route: 058

REACTIONS (6)
  - Thrombocytosis [Recovered/Resolved]
  - Phlebitis [Not Recovered/Not Resolved]
  - Amnesia [Recovered/Resolved]
  - Off label use [Unknown]
  - Thrombocytopenia [Recovering/Resolving]
  - Dizziness [Not Recovered/Not Resolved]

NARRATIVE: CASE EVENT DATE: 20170504
